FAERS Safety Report 4907795-9 (Version None)
Quarter: 2006Q1

REPORT INFORMATION
  Report Type: 
  Country: None (occurrence: None)
  Receive Date: 20060210
  Receipt Date: 20060201
  Transmission Date: 20060701
  Serious: Yes (Death)
  Sender: FDA-Public Use
  Company Number: GB-JNJFOC-20060200388

PATIENT
  Sex: Female

DRUGS (11)
  1. REMICADE [Suspect]
     Indication: RHEUMATOID ARTHRITIS
     Route: 042
  2. PREDNISOLONE [Concomitant]
  3. AMITRIPTYLINE HCL [Concomitant]
  4. BECOTIDE [Concomitant]
  5. CEREBREX [Concomitant]
  6. NIFEDIPINE [Concomitant]
  7. VENTOLIN [Concomitant]
  8. ZESTORETIC [Concomitant]
  9. ZESTORETIC [Concomitant]
  10. CO-PROXAMOL [Concomitant]
  11. CO-PROXAMOL [Concomitant]

REACTIONS (1)
  - DEATH [None]
